FAERS Safety Report 9439470 (Version 2)
Quarter: 2013Q4

REPORT INFORMATION
  Report Type: Spontaneous
  Country: US (occurrence: US)
  Receive Date: 20130805
  Receipt Date: 20131107
  Transmission Date: 20140711
  Serious: No
  Sender: FDA-Public Use
  Company Number: US-009507513-1307USA016274

PATIENT
  Age: 53 Year
  Sex: Male

DRUGS (3)
  1. VICTRELIS [Suspect]
     Indication: HEPATITIS C
     Dosage: 800 MG 3 TIMES DAILY WITH FOOD
     Route: 048
     Dates: start: 201208, end: 201301
  2. REBETOL [Suspect]
     Dosage: UNK
     Route: 048
     Dates: end: 201301
  3. PEGASYS [Suspect]
     Dosage: UNK
     Dates: end: 201301

REACTIONS (1)
  - Hepatitis C [Not Recovered/Not Resolved]
